FAERS Safety Report 25327930 (Version 1)
Quarter: 2025Q2

REPORT INFORMATION
  Report Type: Spontaneous
  Country: GB (occurrence: GB)
  Receive Date: 20250518
  Receipt Date: 20250518
  Transmission Date: 20250717
  Serious: Yes (Other)
  Sender: TEVA
  Company Number: GB-MHRA-TPP29636197C6282917YC1747125788691

PATIENT
  Age: 69 Year
  Sex: Female
  Weight: 67 kg

DRUGS (12)
  1. DOXAZOSIN [Suspect]
     Active Substance: DOXAZOSIN MESYLATE
     Indication: Ill-defined disorder
     Dosage: 1 MG DAILY
     Route: 065
     Dates: start: 20250415
  2. INDAPAMIDE [Concomitant]
     Active Substance: INDAPAMIDE
     Indication: Ill-defined disorder
     Dosage: TAKE ONE EACH MORNING, DURATION: 29 DAYS,1 DOSAGE FORMS DAILY
     Dates: start: 20250327, end: 20250424
  3. OLODATEROL HYDROCHLORIDE\TIOTROPIUM BROMIDE MONOHYDRATE [Concomitant]
     Active Substance: OLODATEROL HYDROCHLORIDE\TIOTROPIUM BROMIDE MONOHYDRATE
     Indication: Ill-defined disorder
     Dosage: TWO PUFFS TO BE INHALED EACH DAY, 2 DOSAGE FORMS DAILY
     Dates: start: 20241111
  4. LOSARTAN [Concomitant]
     Active Substance: LOSARTAN
     Indication: Ill-defined disorder
     Dosage: TAKE ONE DAILY, DURATION: 29 DAYS
     Dates: start: 20250312, end: 20250409
  5. VAGIFEM [Concomitant]
     Active Substance: ESTRADIOL
     Indication: Ill-defined disorder
     Dates: start: 20220928
  6. FERROUS SULFATE [Concomitant]
     Active Substance: FERROUS SULFATE
     Indication: Ill-defined disorder
     Dosage: TAKE ONE ONCE DAILY, 1 DOSAGE FORMS DAILY, DURATION: 2.682 YEARS
     Dates: start: 20220907, end: 20250512
  7. ACETAMINOPHEN [Concomitant]
     Active Substance: ACETAMINOPHEN
     Indication: Ill-defined disorder
     Dates: start: 20240320
  8. ATENOLOL [Concomitant]
     Active Substance: ATENOLOL
     Indication: Ill-defined disorder
     Dosage: TAKE ONE EVERY MORNING,1 DOSAGE FORMS DAILY
     Dates: start: 20250414
  9. OMEPRAZOLE [Concomitant]
     Active Substance: OMEPRAZOLE
     Indication: Ill-defined disorder
     Dosage: ONE TO BE TAKEN EACH DAY (TAKE AT LEAST 4 HOURS...,1 DOSAGE FORMS DAILY
     Dates: start: 20240320
  10. ALBUTEROL [Concomitant]
     Active Substance: ALBUTEROL
     Indication: Ill-defined disorder
     Dates: start: 20240320
  11. LEVOTHYROXINE [Concomitant]
     Active Substance: LEVOTHYROXINE
     Indication: Ill-defined disorder
     Dosage: ONE TO BE TAKEN DAILY,1 DOSAGE FORMS DAILY
     Dates: start: 20240320
  12. AMLODIPINE [Concomitant]
     Active Substance: AMLODIPINE BESYLATE
     Indication: Ill-defined disorder
     Dosage: TAKE ONE TABLET EACH MORNING,1 DOSAGE FORMS DAILY
     Dates: start: 20241115

REACTIONS (6)
  - Arthralgia [Unknown]
  - Dyspnoea [Unknown]
  - Influenza like illness [Recovered/Resolved]
  - Swelling face [Unknown]
  - Pharyngeal swelling [Unknown]
  - Cough [Unknown]

NARRATIVE: CASE EVENT DATE: 20250513
